FAERS Safety Report 4737040-9 (Version None)
Quarter: 2005Q3

REPORT INFORMATION
  Report Type: 
  Country: None (occurrence: None)
  Receive Date: 20050808
  Receipt Date: 20050718
  Transmission Date: 20060218
  Serious: Yes (Hospitalization)
  Sender: FDA-Public Use
  Company Number: US-ROCHE-411391

PATIENT
  Age: 23 Year
  Sex: Female
  Weight: 50.8 kg

DRUGS (5)
  1. PEGASYS [Suspect]
     Route: 058
     Dates: start: 20050513
  2. RIBASPHERE [Concomitant]
     Route: 048
     Dates: start: 20050513
  3. DEPAKOTE [Concomitant]
     Indication: BIPOLAR DISORDER
     Route: 048
     Dates: end: 20050615
  4. IRON NOS [Concomitant]
     Route: 048
  5. LEXAPRO [Concomitant]
     Indication: BIPOLAR DISORDER
     Route: 048
     Dates: end: 20050615

REACTIONS (11)
  - AGITATION [None]
  - BACK PAIN [None]
  - CONTUSION [None]
  - CONVULSION [None]
  - FATIGUE [None]
  - HAEMOGLOBIN DECREASED [None]
  - PAIN [None]
  - RED BLOOD CELL COUNT DECREASED [None]
  - ROAD TRAFFIC ACCIDENT [None]
  - SCRATCH [None]
  - WHITE BLOOD CELL COUNT DECREASED [None]
